FAERS Safety Report 7705366-2 (Version None)
Quarter: 2011Q3

REPORT INFORMATION
  Report Type: 
  Country: None (occurrence: None)
  Receive Date: 20110818
  Receipt Date: 20110804
  Transmission Date: 20111222
  Serious: Yes (Other)
  Sender: FDA-Public Use
  Company Number: 2011P1008025

PATIENT
  Age: 43 Year
  Sex: Female
  Weight: 72.5755 kg

DRUGS (3)
  1. FENTANYL [Suspect]
     Indication: SPINAL DISORDER
     Dosage: 1 PATCH;Q72;TDER
     Route: 062
     Dates: start: 20110711
  2. NEXIUM [Concomitant]
  3. SYNTHROID [Concomitant]

REACTIONS (6)
  - LACERATION [None]
  - WOUND [None]
  - APPLICATION SITE CELLULITIS [None]
  - APPLICATION SITE IRRITATION [None]
  - IMPAIRED WORK ABILITY [None]
  - APPLICATION SITE SCAB [None]
